FAERS Safety Report 5676059-0 (Version None)
Quarter: 2008Q1

REPORT INFORMATION
  Report Type: 
  Country: None (occurrence: None)
  Receive Date: 20080321
  Receipt Date: 20080310
  Transmission Date: 20080703
  Serious: Yes (Hospitalization)
  Sender: FDA-Public Use
  Company Number: ES-ROCHE-552524

PATIENT
  Age: 72 Year
  Sex: Female
  Weight: 56.5 kg

DRUGS (7)
  1. CAPECITABINE [Suspect]
     Dosage: GIVEN ON DAYS 1 - 10.
     Route: 048
     Dates: start: 20080102, end: 20080213
  2. OXALIPLATIN [Suspect]
     Dosage: DOSE FORM REPORTED AS INFUSION.
     Route: 042
     Dates: start: 20080102, end: 20080224
  3. BEVACIZUMAB [Suspect]
     Dosage: DOSE FORM REPORTED AS INFUSION.
     Route: 042
     Dates: start: 20080102, end: 20080224
  4. MEPRAZOL [Concomitant]
     Dates: start: 20071129
  5. UNSPECIFIED MEDICATION [Concomitant]
     Dosage: REPORTED AS ORAL JENM.
     Dates: start: 20080129, end: 20080223
  6. LORMETAZEPAM [Concomitant]
     Dates: start: 20080220
  7. FLUCONAZOLE [Concomitant]
     Dosage: EVERY 24 HOURS.
     Dates: start: 20080220, end: 20080302

REACTIONS (1)
  - GASTROINTESTINAL DISORDER [None]
